FAERS Safety Report 15959351 (Version 3)
Quarter: 2019Q2

REPORT INFORMATION
  Report Type: Spontaneous
  Country: US (occurrence: US)
  Receive Date: 20190214
  Receipt Date: 20190514
  Transmission Date: 20190711
  Serious: Yes (Other)
  Sender: FDA-Public Use
  Company Number: US-HORIZON-VIM-0072-2019

PATIENT
  Age: 82 Year
  Sex: Male

DRUGS (35)
  1. VIMOVO [Suspect]
     Active Substance: ESOMEPRAZOLE MAGNESIUM\NAPROXEN
     Indication: PRODUCT USED FOR UNKNOWN INDICATION
     Route: 048
     Dates: start: 2016, end: 2017
  2. LISINOPRIL. [Concomitant]
     Active Substance: LISINOPRIL
     Indication: HYPERTENSION
  3. CYCLOBENZAPRINE. [Concomitant]
     Active Substance: CYCLOBENZAPRINE
     Indication: MUSCLE SPASMS
  4. NIASPAN [Concomitant]
     Active Substance: NIACIN
     Indication: BLOOD CHOLESTEROL
  5. ACIPHEX [Suspect]
     Active Substance: RABEPRAZOLE SODIUM
     Route: 065
     Dates: start: 2016, end: 2017
  6. WARFARIN [Concomitant]
     Active Substance: WARFARIN
     Indication: COAGULATION TIME SHORTENED
  7. OXYCODONE [Concomitant]
     Active Substance: OXYCODONE
     Indication: PAIN
  8. ATENOLOL. [Concomitant]
     Active Substance: ATENOLOL
     Indication: HYPERTENSION
  9. BUSPIRONE [Concomitant]
     Active Substance: BUSPIRONE HYDROCHLORIDE
     Indication: ANXIETY
  10. LIMBREL [Concomitant]
     Active Substance: DIETARY SUPPLEMENT\FLAVOCOXID
     Indication: OSTEOARTHRITIS
  11. KETOROLAC [Concomitant]
     Active Substance: KETOROLAC\KETOROLAC TROMETHAMINE
  12. AMOXICILLIN. [Concomitant]
     Active Substance: AMOXICILLIN
  13. PRILOSEC [Suspect]
     Active Substance: OMEPRAZOLE MAGNESIUM
     Indication: PEPTIC ULCER
     Route: 048
     Dates: start: 20160729, end: 20170721
  14. METANX [Concomitant]
     Active Substance: LEVOMEFOLATE CALCIUM\METHYLCOBALAMIN\PYRIDOXAL PHOSPHATE ANHYDROUS
     Indication: NEUROPATHY PERIPHERAL
  15. LORAZEPAM. [Concomitant]
     Active Substance: LORAZEPAM
     Indication: ANXIETY
  16. PREDNISONE. [Concomitant]
     Active Substance: PREDNISONE
     Indication: STEROID THERAPY
  17. HYDRALAZINE [Concomitant]
     Active Substance: HYDRALAZINE HYDROCHLORIDE
     Indication: HYPERTENSION
  18. PRILOSEC [Suspect]
     Active Substance: OMEPRAZOLE MAGNESIUM
     Indication: PEPTIC ULCER
     Route: 048
     Dates: start: 20170721
  19. PANTOPRAZOLE [Suspect]
     Active Substance: PANTOPRAZOLE
     Indication: PEPTIC ULCER
     Route: 065
     Dates: start: 20151007, end: 20151207
  20. FUROSEMIDE. [Concomitant]
     Active Substance: FUROSEMIDE
  21. HYDROCODONE BITARTRATE AND ACETAMINOPHEN [Concomitant]
     Active Substance: ACETAMINOPHEN\HYDROCODONE BITARTRATE
     Indication: PAIN
  22. PRILOSEC [Suspect]
     Active Substance: OMEPRAZOLE MAGNESIUM
     Indication: PEPTIC ULCER
     Route: 048
     Dates: start: 2016, end: 2017
  23. ZOLPIDEM [Concomitant]
     Active Substance: ZOLPIDEM\ZOLPIDEM TARTRATE
     Indication: INSOMNIA
  24. PRILOSEC [Suspect]
     Active Substance: OMEPRAZOLE MAGNESIUM
     Indication: PEPTIC ULCER
     Dosage: GENERIC
     Route: 065
     Dates: start: 20161104, end: 20180828
  25. NAPROXEN. [Concomitant]
     Active Substance: NAPROXEN
  26. LEVEMIR [Concomitant]
     Active Substance: INSULIN DETEMIR
     Indication: DIABETES MELLITUS
  27. TAMSULOSIN [Concomitant]
     Active Substance: TAMSULOSIN
  28. ACETAZOLAMIDE. [Concomitant]
     Active Substance: ACETAZOLAMIDE
     Indication: GLAUCOMA
  29. ONDASETRON [Concomitant]
     Active Substance: ONDANSETRON
     Indication: NAUSEA
  30. IBUPROFEN. [Concomitant]
     Active Substance: IBUPROFEN
  31. CARVEDILOL. [Concomitant]
     Active Substance: CARVEDILOL
     Indication: CARDIAC DISORDER
  32. HUMALOG [Concomitant]
     Active Substance: INSULIN LISPRO
     Indication: DIABETES MELLITUS
  33. ESZOPICLONE. [Concomitant]
     Active Substance: ESZOPICLONE
     Indication: INSOMNIA
  34. COREG [Concomitant]
     Active Substance: CARVEDILOL
     Indication: STEROID THERAPY
  35. GABAPENTIN. [Concomitant]
     Active Substance: GABAPENTIN
     Indication: PAIN

REACTIONS (2)
  - Acute kidney injury [Unknown]
  - Renal failure [Not Recovered/Not Resolved]

NARRATIVE: CASE EVENT DATE: 20170722
